FAERS Safety Report 7470283-2 (Version None)
Quarter: 2011Q2

REPORT INFORMATION
  Report Type: 
  Country: None (occurrence: None)
  Receive Date: 20110510
  Receipt Date: 20110506
  Transmission Date: 20111010
  Serious: Yes (Other)
  Sender: FDA-Public Use
  Company Number: US-B.I. PHARMACEUTICALS,INC./RIDGEFIELD-2011-BP-12208BP

PATIENT
  Sex: Male

DRUGS (6)
  1. PRADAXA [Suspect]
     Indication: ATRIAL FIBRILLATION
     Dosage: 300 MG
     Route: 048
     Dates: start: 20110225, end: 20110410
  2. ALTACE [Concomitant]
     Indication: HYPERTENSION
  3. CHLORKON [Concomitant]
  4. ALOXIN [Concomitant]
     Indication: ATRIAL FIBRILLATION
  5. M.V.I. [Concomitant]
  6. FUROSEMIDE [Concomitant]
     Indication: CARDIAC FAILURE CONGESTIVE

REACTIONS (1)
  - INTRACARDIAC THROMBUS [None]
